FAERS Safety Report 4851321-X (Version None)
Quarter: 2005Q4

REPORT INFORMATION
  Report Type: 
  Country: None (occurrence: None)
  Receive Date: 20051208
  Receipt Date: 20051129
  Transmission Date: 20060501
  Serious: Yes (Death)
  Sender: FDA-Public Use
  Company Number: TCI2005A04654

PATIENT
  Age: 78 Year
  Sex: Male

DRUGS (3)
  1. ACTOS [Suspect]
     Indication: DIABETES MELLITUS NON-INSULIN-DEPENDENT
     Dosage: 30 MG (30 MG, 1 IN 1 D) PER ORAL
     Route: 048
     Dates: start: 20050208, end: 20051101
  2. AMARYL [Concomitant]
  3. GLUFAST TAB. 10MG (MITIGLINIDE CALCIUM HYDRATE) [Concomitant]

REACTIONS (32)
  - ANAEMIA [None]
  - ANOREXIA [None]
  - ANURIA [None]
  - BLOOD ALKALINE PHOSPHATASE INCREASED [None]
  - BLOOD LACTATE DEHYDROGENASE INCREASED [None]
  - BLOOD URIC ACID INCREASED [None]
  - CHOLESTASIS [None]
  - CONDITION AGGRAVATED [None]
  - GASTROOESOPHAGEAL CANCER [None]
  - HAEMATEMESIS [None]
  - HAEMORRHAGIC DIATHESIS [None]
  - HEPATIC FAILURE [None]
  - JAUNDICE [None]
  - JAUNDICE CHOLESTATIC [None]
  - LIVER DISORDER [None]
  - LYMPHOMA [None]
  - MALAISE [None]
  - METASTASES TO BONE [None]
  - METASTASES TO LYMPH NODES [None]
  - NAUSEA [None]
  - OESOPHAGEAL CARCINOMA [None]
  - OESOPHAGEAL NEOPLASM [None]
  - PLATELET COUNT DECREASED [None]
  - PYREXIA [None]
  - RENAL IMPAIRMENT [None]
  - SMALL CELL LUNG CANCER STAGE UNSPECIFIED [None]
  - SPLENOMEGALY [None]
  - TUMOUR LYSIS SYNDROME [None]
  - VARICES OESOPHAGEAL [None]
  - VOMITING [None]
  - WEIGHT DECREASED [None]
  - WHITE BLOOD CELL COUNT INCREASED [None]
